FAERS Safety Report 7325639-5 (Version None)
Quarter: 2011Q1

REPORT INFORMATION
  Report Type: 
  Country: None (occurrence: None)
  Receive Date: 20110302
  Receipt Date: 20110214
  Transmission Date: 20110831
  Serious: Yes (Other)
  Sender: FDA-Public Use
  Company Number: FR-PFIZER INC-2010020505

PATIENT
  Sex: Male
  Weight: 99.5 kg

DRUGS (6)
  1. ATRIPLA [Suspect]
     Indication: HIV INFECTION
     Dosage: UNK
     Dates: start: 20090601
  2. OMEPRAZOLE [Suspect]
     Indication: PROPHYLAXIS
     Dosage: UNK
     Dates: start: 20060515
  3. REFACTO [Suspect]
     Dosage: 3000 IU, 3 TIMES PER WEEK
     Route: 042
     Dates: start: 20091028
  4. FELDENE [Suspect]
     Indication: ARTHRALGIA
     Dosage: UNK
     Dates: start: 20060515
  5. REFACTO [Suspect]
     Indication: FACTOR VIII DEFICIENCY
     Dosage: 3000 IU, ALTERNATE DAY
     Route: 042
     Dates: start: 19991005, end: 20091028
  6. PARACETAMOL [Suspect]
     Indication: PAIN
     Dosage: UNK

REACTIONS (1)
  - FACTOR VIII INHIBITION [None]
